FAERS Safety Report 12990228 (Version 1)
Quarter: 2016Q4

REPORT INFORMATION
  Report Type: Spontaneous
  Country: US (occurrence: US)
  Receive Date: 20161201
  Receipt Date: 20161201
  Transmission Date: 20170207
  Serious: Yes (Hospitalization, Other)
  Sender: FDA-Public Use
  Company Number: US-JNJFOC-20161129827

PATIENT
  Sex: Male

DRUGS (1)
  1. INVOKANA [Suspect]
     Active Substance: CANAGLIFLOZIN
     Indication: DIABETES MELLITUS
     Route: 048
     Dates: start: 201506

REACTIONS (5)
  - Renal failure [Unknown]
  - Ketoacidosis [Unknown]
  - Nephropathy [Unknown]
  - Cerebrovascular accident [Unknown]
  - Myocardial infarction [Unknown]
